FAERS Safety Report 6288990-6 (Version None)
Quarter: 2009Q3

REPORT INFORMATION
  Report Type: 
  Country: None (occurrence: None)
  Receive Date: 20090729
  Receipt Date: 20090727
  Transmission Date: 20100115
  Serious: Yes (Death)
  Sender: FDA-Public Use
  Company Number: PHEH2009US06443

PATIENT
  Sex: Female
  Weight: 68 kg

DRUGS (10)
  1. GLEEVEC [Suspect]
     Indication: CHROMOSOME ANALYSIS ABNORMAL
     Dosage: 400 MG/DAY
     Route: 048
     Dates: start: 20081201, end: 20090504
  2. GLEEVEC [Suspect]
     Indication: ACUTE LYMPHOCYTIC LEUKAEMIA
  3. NEURONTIN [Concomitant]
     Indication: NEUROPATHY PERIPHERAL
     Dosage: 300 MG, BID
     Route: 048
  4. ACTOS [Concomitant]
     Indication: DIABETES MELLITUS
     Route: 048
  5. DIGOXIN [Concomitant]
     Indication: ARRHYTHMIA
     Dosage: 0.25 MG, QD
     Route: 048
  6. LIPITOR [Concomitant]
     Indication: HYPERCHOLESTEROLAEMIA
     Dosage: 20 MG, QD
     Route: 048
  7. TOPROL-XL [Concomitant]
     Indication: HYPERTENSION
     Dosage: 100 MG, QHS
  8. PREDNISONE [Concomitant]
  9. LASIX [Concomitant]
     Indication: HYPERTENSION
  10. POTASSIUM CHLORIDE [Concomitant]

REACTIONS (2)
  - CARDIAC ARREST [None]
  - UNRESPONSIVE TO STIMULI [None]
